FAERS Safety Report 6531704-2 (Version None)
Quarter: 2010Q1

REPORT INFORMATION
  Report Type: 
  Country: None (occurrence: None)
  Receive Date: 20100108
  Receipt Date: 20091231
  Transmission Date: 20100710
  Serious: Yes (Hospitalization)
  Sender: FDA-Public Use
  Company Number: GB-ELI_LILLY_AND_COMPANY-GB200912006359

PATIENT
  Age: 60 Year
  Sex: Male
  Weight: 80.4 kg

DRUGS (6)
  1. ALIMTA [Suspect]
     Indication: LUNG ADENOCARCINOMA
     Dosage: 975 MG, UNKNOWN
     Route: 042
     Dates: start: 20091119, end: 20091119
  2. CYANOCOBALAMIN [Concomitant]
     Indication: PROPHYLAXIS
  3. DEXAMETHASONE [Concomitant]
     Indication: PROPHYLAXIS
  4. FOLIC ACID [Concomitant]
     Indication: PROPHYLAXIS
  5. METOCLOPRAMIDE [Concomitant]
  6. ONDANSETRON [Concomitant]

REACTIONS (1)
  - HEPATITIS ACUTE [None]
